FAERS Safety Report 8200646-9 (Version None)
Quarter: 2012Q1

REPORT INFORMATION
  Report Type: 
  Country: None (occurrence: None)
  Receive Date: 20120222
  Receipt Date: 20120217
  Transmission Date: 20120608
  Serious: Yes (Life-Threatening, Other)
  Sender: FDA-Public Use
  Company Number: 2012031034

PATIENT
  Sex: Male

DRUGS (13)
  1. HIZENTRA [Suspect]
     Indication: IMMUNODEFICIENCY COMMON VARIABLE
     Dates: start: 20120124
  2. HIZENTRA [Suspect]
     Indication: CHRONIC LYMPHOCYTIC LEUKAEMIA
     Dates: start: 20120124
  3. KLOR-CON [Concomitant]
  4. PEPCID [Concomitant]
  5. PROTONIX [Concomitant]
  6. SODIUM BICARBONATE IN PLASTIC CONTAINER [Concomitant]
  7. ALLOPURINOL [Concomitant]
  8. DEXAMETHASONE [Concomitant]
  9. FLUDROCORTISONE ACETATE [Concomitant]
  10. ACYCLOVIR [Concomitant]
  11. LIPITOR [Concomitant]
  12. BIAXIN [Concomitant]
  13. HYDROCORTONE [Concomitant]

REACTIONS (2)
  - THROMBOCYTOPENIA [None]
  - IDIOPATHIC THROMBOCYTOPENIC PURPURA [None]
